FAERS Safety Report 20474867 (Version 3)
Quarter: 2024Q3

REPORT INFORMATION
  Report Type: Report from Study
  Country: US (occurrence: US)
  Receive Date: 20220215
  Receipt Date: 20240906
  Transmission Date: 20241016
  Serious: No
  Sender: KYOWA
  Company Number: US-KYOWAKIRIN-2022BKK001569

PATIENT

DRUGS (3)
  1. BUROSUMAB [Suspect]
     Active Substance: BUROSUMAB
     Indication: Hereditary hypophosphataemic rickets
     Dosage: 80 MG, 1X/4 WEEKS
     Route: 058
     Dates: start: 20191017
  2. BUROSUMAB [Suspect]
     Active Substance: BUROSUMAB
     Indication: Hereditary hypophosphataemic rickets
     Dosage: 80 MG, 1X/4 WEEKS, 80 MG, (COMBINATION OF STRENGTHS OF 20 MG/ML AND 30 MG/ML TO ACHIEVE DOSE OF 80 M
     Route: 058
     Dates: start: 20191017
  3. BUROSUMAB [Suspect]
     Active Substance: BUROSUMAB
     Indication: Hereditary hypophosphataemic rickets
     Dosage: 80 MG, 1X/4 WEEKS, 80 MG, (COMBINATION OF STRENGTHS OF 20 MG/ML AND 30 MG/ML TO ACHIEVE DOSE OF 80 M
     Route: 058
     Dates: start: 20191017

REACTIONS (5)
  - COVID-19 [Recovered/Resolved]
  - Fatigue [Unknown]
  - Back pain [Unknown]
  - COVID-19 [Unknown]
  - Product dose omission issue [Unknown]

NARRATIVE: CASE EVENT DATE: 20240101
